FAERS Safety Report 26094226 (Version 1)
Quarter: 2025Q4

REPORT INFORMATION
  Report Type: Spontaneous
  Country: US (occurrence: US)
  Receive Date: 20251126
  Receipt Date: 20251126
  Transmission Date: 20260117
  Serious: No
  Sender: EMD SERONO INC
  Company Number: US-Merck Healthcare KGaA-2025060216

PATIENT
  Age: 45 Year
  Sex: Male

DRUGS (2)
  1. MAVENCLAD [Suspect]
     Active Substance: CLADRIBINE
     Indication: Multiple sclerosis
     Dosage: YEAR ONE CYCLE ONE THERAPY: 20 MG ON DAYS 1 TO 4 AND 1O MG ON DAY 5
     Dates: start: 20250927
  2. MAVENCLAD [Suspect]
     Active Substance: CLADRIBINE
     Dosage: YEAR ONE CYCLE TWO THERAPY

REACTIONS (3)
  - Arthralgia [Not Recovered/Not Resolved]
  - Insomnia [Unknown]
  - Abnormal dreams [Unknown]
